FAERS Safety Report 7533179-3 (Version None)
Quarter: 2011Q2

REPORT INFORMATION
  Report Type: 
  Country: None (occurrence: None)
  Receive Date: 20110608
  Receipt Date: 20100923
  Transmission Date: 20111010
  Serious: Yes (Death, Other)
  Sender: FDA-Public Use
  Company Number: US-BAYER-201035479NA

PATIENT
  Age: 71 Year
  Sex: Male
  Weight: 83 kg

DRUGS (15)
  1. TRASYLOL [Suspect]
     Indication: CORONARY ARTERY BYPASS
     Dosage: INITAL TEST DOSE: 1ML
     Route: 042
     Dates: start: 19990930, end: 19990930
  2. HEPARIN [Concomitant]
     Dosage: 5000 U, UNK
     Dates: start: 19990930
  3. LANOXIN [Concomitant]
     Dosage: 0.25 MG, UNK
     Route: 048
  4. LASIX [Concomitant]
     Dosage: UNK
     Dates: start: 19990930
  5. LEVAQUIN [Concomitant]
     Dosage: 50 MG, QD
     Route: 048
  6. MONOPRIL [Concomitant]
     Dosage: 20 MG, QD
     Route: 048
  7. PLATELETS [Concomitant]
     Dosage: 10 U, UNK
     Route: 042
     Dates: start: 19990930
  8. REGULAR INSULIN [Concomitant]
     Dosage: UNK
     Dates: start: 19990930
  9. NPH INSULIN [Concomitant]
     Dosage: 31 UNITS AM, 35 UNITS PM DAILY
     Route: 058
  10. PLASMA [Concomitant]
     Dosage: 4 U, UNK
     Route: 042
     Dates: start: 19990930
  11. LIDOCAINE [Concomitant]
     Dosage: UNK
     Dates: start: 19990930
  12. LASIX [Concomitant]
     Dosage: 40 MG, QD
     Route: 048
  13. PROTAMINE SULFATE [Concomitant]
     Dosage: UNK
     Dates: start: 19990930
  14. TRASYLOL [Suspect]
     Indication: CORONARY REVASCULARISATION
  15. SODIUM BICARBONATE [Concomitant]
     Dosage: 50 MEQ, UNK
     Dates: start: 19990930

REACTIONS (11)
  - RENAL FAILURE [None]
  - ANXIETY [None]
  - RENAL IMPAIRMENT [None]
  - UNEVALUABLE EVENT [None]
  - STRESS [None]
  - PAIN [None]
  - ANHEDONIA [None]
  - FEAR [None]
  - EMOTIONAL DISTRESS [None]
  - DEATH [None]
  - RENAL INJURY [None]
